FAERS Safety Report 21598263 (Version 1)
Quarter: 2022Q4

REPORT INFORMATION
  Report Type: Spontaneous
  Country: US (occurrence: US)
  Receive Date: 20221115
  Receipt Date: 20221115
  Transmission Date: 20230112
  Serious: No
  Sender: FDA-Public Use
  Company Number: US-TARO PHARMACEUTICALS USA INC.-2022TAR01025

PATIENT

DRUGS (2)
  1. MUPIROCIN [Suspect]
     Active Substance: MUPIROCIN
     Indication: Epistaxis
     Dosage: UNK, TID, GENEROUS AMOUNT
     Route: 045
     Dates: end: 202207
  2. MUPIROCIN [Suspect]
     Active Substance: MUPIROCIN
     Indication: Promotion of wound healing

REACTIONS (3)
  - Dizziness [Not Recovered/Not Resolved]
  - Sensation of foreign body [Not Recovered/Not Resolved]
  - Off label use [Unknown]
